FAERS Safety Report 5233804-6 (Version None)
Quarter: 2007Q1

REPORT INFORMATION
  Report Type: 
  Country: None (occurrence: None)
  Receive Date: 20070208
  Receipt Date: 20070202
  Transmission Date: 20070707
  Serious: Yes (Hospitalization)
  Sender: FDA-Public Use
  Company Number: US-BRISTOL-MYERS SQUIBB COMPANY-13509419

PATIENT
  Age: 71 Year
  Sex: Female

DRUGS (3)
  1. CETUXIMAB [Suspect]
     Indication: LUNG CANCER METASTATIC
     Route: 042
     Dates: start: 20060824, end: 20060824
  2. TAXOL [Suspect]
     Indication: LUNG CANCER METASTATIC
     Route: 042
     Dates: start: 20060817, end: 20060817
  3. CARBOPLATIN [Suspect]
     Indication: LUNG CANCER METASTATIC
     Route: 042
     Dates: start: 20060817, end: 20060817

REACTIONS (10)
  - DEHYDRATION [None]
  - DYSPNOEA [None]
  - HYPOKALAEMIA [None]
  - HYPOMAGNESAEMIA [None]
  - HYPONATRAEMIA [None]
  - HYPOTENSION [None]
  - NEUTROPENIA [None]
  - SEPTIC SHOCK [None]
  - SKIN LESION [None]
  - VIRAL INFECTION [None]
